FAERS Safety Report 15397643 (Version 1)
Quarter: 2018Q3

REPORT INFORMATION
  Report Type: Spontaneous
  Country: CN (occurrence: CN)
  Receive Date: 20180918
  Receipt Date: 20180918
  Transmission Date: 20181010
  Serious: Yes (Hospitalization)
  Sender: FDA-Public Use
  Company Number: CN-ELI_LILLY_AND_COMPANY-CN201809005902

PATIENT
  Sex: Male
  Weight: 65 kg

DRUGS (3)
  1. INSULIN GLARGINE [Concomitant]
     Active Substance: INSULIN GLARGINE
     Indication: PRODUCT USED FOR UNKNOWN INDICATION
  2. HUMALOG MIX50/50 [Suspect]
     Active Substance: INSULIN LISPRO
     Indication: PRODUCT USED FOR UNKNOWN INDICATION
     Dosage: 6 U, TID
     Route: 058
     Dates: start: 2015
  3. HUMALOG MIX50/50 [Suspect]
     Active Substance: INSULIN LISPRO
     Dosage: 10 U, TID
     Route: 058
     Dates: start: 2017

REACTIONS (4)
  - Blood glucose increased [Unknown]
  - Intentional product misuse [Unknown]
  - Drug dose omission [Unknown]
  - Hypoglycaemia [Unknown]

NARRATIVE: CASE EVENT DATE: 2017
